FAERS Safety Report 17351810 (Version 1)
Quarter: 2020Q1

REPORT INFORMATION
  Report Type: Spontaneous
  Country: US (occurrence: US)
  Receive Date: 20200130
  Receipt Date: 20200130
  Transmission Date: 20200409
  Serious: No
  Sender: FDA-Public Use
  Company Number: US-BAUSCH-BL-2020-001538

PATIENT
  Age: 85 Year
  Sex: Male

DRUGS (5)
  1. ERYTHROMYCIN OPHTHALMIC OINTMENT USP 0.5% [Suspect]
     Active Substance: ERYTHROMYCIN
     Indication: OPHTHALMIC HERPES ZOSTER
     Route: 047
     Dates: start: 20200113, end: 20200115
  2. ERYTHROMYCIN OPHTHALMIC OINTMENT USP 0.5% [Suspect]
     Active Substance: ERYTHROMYCIN
     Indication: PRODUCT USE IN UNAPPROVED INDICATION
  3. DORZOLAMIDE [Concomitant]
     Active Substance: DORZOLAMIDE
     Indication: PRODUCT USED FOR UNKNOWN INDICATION
  4. BRIMONIDINE [Concomitant]
     Active Substance: BRIMONIDINE TARTRATE
     Indication: PRODUCT USED FOR UNKNOWN INDICATION
  5. LUMIGAN [Concomitant]
     Active Substance: BIMATOPROST
     Indication: PRODUCT USED FOR UNKNOWN INDICATION

REACTIONS (3)
  - Product use in unapproved indication [Unknown]
  - Pain [Recovered/Resolved]
  - Headache [Recovered/Resolved]

NARRATIVE: CASE EVENT DATE: 202001
